FAERS Safety Report 11139584 (Version 2)
Quarter: 2015Q2

REPORT INFORMATION
  Report Type: Spontaneous
  Country: CH (occurrence: CH)
  Receive Date: 20150527
  Receipt Date: 20150609
  Transmission Date: 20150821
  Serious: Yes (Hospitalization, Other)
  Sender: FDA-Public Use
  Company Number: CH-TEVA-565621ISR

PATIENT
  Age: 74 Year
  Sex: Female

DRUGS (1)
  1. HYDROCHLOROTHIAZIDE. [Suspect]
     Active Substance: HYDROCHLOROTHIAZIDE
     Indication: HYPERTENSION
     Dosage: TYPE OF THE ANGIOTENSIN-II-RECEPTOR ANTAGONIST WAS NOT PROVIDED
     Route: 065

REACTIONS (11)
  - Inappropriate antidiuretic hormone secretion [Unknown]
  - Hyperprolactinaemia [Unknown]
  - Femur fracture [Unknown]
  - Aneurysm [Unknown]
  - Nausea [Unknown]
  - Hyponatraemia [Recovered/Resolved]
  - Fall [Unknown]
  - Fatigue [Unknown]
  - Normochromic normocytic anaemia [Unknown]
  - C-reactive protein increased [Unknown]
  - Secondary hypogonadism [Unknown]
